FAERS Safety Report 8222506-X (Version None)
Quarter: 2012Q1

REPORT INFORMATION
  Report Type: 
  Country: None (occurrence: None)
  Receive Date: 20120320
  Receipt Date: 20120312
  Transmission Date: 20120608
  Serious: Yes (Hospitalization)
  Sender: FDA-Public Use
  Company Number: US-BAYER-2011-101385

PATIENT
  Age: 31 Year
  Sex: Female
  Weight: 78.005 kg

DRUGS (2)
  1. ONE-A-DAY VITAMIN [Concomitant]
     Dosage: UNK UNK, QD
  2. YAZ [Suspect]
     Dosage: UNK
     Dates: start: 20060101, end: 20080101

REACTIONS (8)
  - GALLBLADDER DISORDER [None]
  - ANXIETY [None]
  - INJURY [None]
  - PAIN [None]
  - EMOTIONAL DISTRESS [None]
  - DEPRESSION [None]
  - ANHEDONIA [None]
  - GENERAL PHYSICAL HEALTH DETERIORATION [None]
